FAERS Safety Report 25706495 (Version 1)
Quarter: 2025Q3

REPORT INFORMATION
  Report Type: Spontaneous
  Country: US (occurrence: US)
  Receive Date: 20250820
  Receipt Date: 20250820
  Transmission Date: 20251020
  Serious: No
  Sender: PFIZER
  Company Number: US-PFIZER INC-202500166246

PATIENT
  Age: 73 Year
  Sex: Male

DRUGS (7)
  1. PAXLOVID [Suspect]
     Active Substance: NIRMATRELVIR\RITONAVIR
     Indication: COVID-19 treatment
     Dosage: [NIRMATRELVIR 300 MG]/[RITONAVIR 100 MG]; 2X/DAY
     Dates: start: 20250805, end: 20250809
  2. METOPROLOL [Concomitant]
     Active Substance: METOPROLOL
  3. NIFEDIPINE [Concomitant]
     Active Substance: NIFEDIPINE
     Dates: start: 20240624
  4. CLOPIDOGREL [Concomitant]
     Active Substance: CLOPIDOGREL BISULFATE
     Dates: start: 20240624
  5. METFORMIN [Concomitant]
     Active Substance: METFORMIN HYDROCHLORIDE
     Dates: start: 20211001
  6. TAMSULOSIN [Concomitant]
     Active Substance: TAMSULOSIN
     Dates: start: 20211001
  7. ASPIRIN [Concomitant]
     Active Substance: ASPIRIN
     Dates: start: 20240624

REACTIONS (5)
  - Pyrexia [Not Recovered/Not Resolved]
  - Nasal congestion [Not Recovered/Not Resolved]
  - Oropharyngeal pain [Not Recovered/Not Resolved]
  - Asthenia [Not Recovered/Not Resolved]
  - Malaise [Not Recovered/Not Resolved]

NARRATIVE: CASE EVENT DATE: 20250817
